FAERS Safety Report 12912189 (Version 1)
Quarter: 2016Q4

REPORT INFORMATION
  Report Type: Spontaneous
  Country: US (occurrence: US)
  Receive Date: 20161104
  Receipt Date: 20161104
  Transmission Date: 20170207
  Serious: No
  Sender: FDA-Public Use
  Company Number: US-CHARTWELL LIFE SCIENCE LLC-2016CHA00024

PATIENT
  Age: 40 Year
  Sex: Male
  Weight: 90.7 kg

DRUGS (2)
  1. UNSPECIFIED MEDICATION (^METRO SOMETHING^) [Suspect]
     Active Substance: UNSPECIFIED INGREDIENT
     Dosage: UNK
     Dates: start: 20160614, end: 20160621
  2. DOXYCYCLINE HYCLATE. [Suspect]
     Active Substance: DOXYCYCLINE HYCLATE
     Dosage: 100 MG, 2X/DAY
     Route: 048
     Dates: start: 20160614, end: 20160621

REACTIONS (3)
  - Rosacea [Recovered/Resolved]
  - Diarrhoea [Recovered/Resolved]
  - Product use issue [Recovered/Resolved]

NARRATIVE: CASE EVENT DATE: 20160614
